FAERS Safety Report 8461247-0 (Version None)
Quarter: 2012Q2

REPORT INFORMATION
  Report Type: 
  Country: None (occurrence: None)
  Receive Date: 20120323
  Receipt Date: 20111213
  Transmission Date: 20120825
  Serious: Yes (Hospitalization, Other)
  Sender: FDA-Public Use
  Company Number: 163-21880-11102359

PATIENT
  Age: 63 Year
  Sex: Female
  Weight: 56.6996 kg

DRUGS (9)
  1. ASPIRIN [Concomitant]
  2. REVLIMID [Suspect]
     Indication: MYELODYSPLASTIC SYNDROME
     Dosage: 10 MG, QD, PO
     Route: 048
     Dates: start: 20111011, end: 20111104
  3. BLOOD TRANSFUSION (BLOOD TRANSFUSION, AUXILIARY PRODUCTS) [Concomitant]
  4. D3 + K2 DOTS (COLECALCIFEROL) [Concomitant]
  5. ACIPHEX [Concomitant]
  6. ARANESP [Concomitant]
  7. MULTIVITAMIN [Concomitant]
  8. COD LIVER OIL FORTIFIED TAB [Concomitant]
  9. FOLIC ACID [Concomitant]

REACTIONS (6)
  - PLEURAL EFFUSION [None]
  - PLATELET COUNT DECREASED [None]
  - ACUTE MYELOID LEUKAEMIA [None]
  - RASH GENERALISED [None]
  - MYELODYSPLASTIC SYNDROME TRANSFORMATION [None]
  - HAEMOGLOBIN DECREASED [None]
